FAERS Safety Report 15022296 (Version 1)
Quarter: 2018Q2

REPORT INFORMATION
  Report Type: Report from Study
  Country: DE (occurrence: DE)
  Receive Date: 20180618
  Receipt Date: 20180618
  Transmission Date: 20180711
  Serious: Yes (Hospitalization)
  Sender: FDA-Public Use
  Company Number: DE-TEVA-2018-DE-910102

PATIENT
  Sex: Male
  Weight: 66 kg

DRUGS (11)
  1. BEVACIZUMAB. [Suspect]
     Active Substance: BEVACIZUMAB
     Indication: COLON CANCER
     Dosage: EVERY TWO WEEKS, DAY 15 - DATE OF LAST DOSE PRIOR TO MUCOSITIS ORAL: 09-DEC-2013
     Route: 042
     Dates: start: 20130205
  2. FLUOROURACIL. [Suspect]
     Active Substance: FLUOROURACIL
     Indication: COLON CANCER
     Dosage: DAY 1, DAY 2, DAY 15
     Route: 041
     Dates: start: 20130204
  3. BEVACIZUMAB. [Suspect]
     Active Substance: BEVACIZUMAB
     Route: 042
     Dates: start: 20130916
  4. OMEPRAZOL [Concomitant]
     Active Substance: OMEPRAZOLE
     Dates: start: 20130323
  5. CALCIUM FOLINATE [Suspect]
     Active Substance: LEUCOVORIN CALCIUM
     Indication: COLORECTAL CANCER
     Dosage: 340 - 360 MG - DAY 1, DAY 2, DAY 15
     Route: 042
     Dates: start: 20130204, end: 20130806
  6. PARACETAMOL [Concomitant]
     Active Substance: ACETAMINOPHEN
     Dates: start: 20130323
  7. FLUOROURACIL. [Suspect]
     Active Substance: FLUOROURACIL
     Dosage: DAY 1, DAY 2, DAY 15
     Route: 040
     Dates: start: 20130723, end: 20130813
  8. OXALIPLATIN. [Suspect]
     Active Substance: OXALIPLATIN
     Indication: COLORECTAL CANCER
     Dosage: EVERY TWO WEEKS
     Route: 042
     Dates: start: 20130204, end: 20130806
  9. METAMIZOL [Concomitant]
     Active Substance: METAMIZOLE SODIUM
     Dates: start: 20130323
  10. FLUOROURACIL. [Suspect]
     Active Substance: FLUOROURACIL
     Dosage: DAY 1, DAY 2, DAY 15
     Route: 041
     Dates: start: 20130723
  11. FLUOROURACIL. [Suspect]
     Active Substance: FLUOROURACIL
     Dosage: DAY 1, DAY 2, DAY 15
     Route: 040
     Dates: start: 20130204

REACTIONS (8)
  - Nausea [Unknown]
  - Abdominal pain lower [Unknown]
  - Fatigue [Unknown]
  - Vomiting [Unknown]
  - Diarrhoea [Unknown]
  - Constipation [Unknown]
  - Abdominal pain [Unknown]
  - Stomatitis [Unknown]
